FAERS Safety Report 4928775-3 (Version None)
Quarter: 2006Q1

REPORT INFORMATION
  Report Type: 
  Country: None (occurrence: None)
  Receive Date: 20060223
  Receipt Date: 20060213
  Transmission Date: 20060701
  Serious: Yes (Death)
  Sender: FDA-Public Use
  Company Number: 2006022316

PATIENT
  Sex: Male

DRUGS (5)
  1. GEODON [Suspect]
     Indication: BIPOLAR DISORDER
     Dosage: 120 MG (1 D), ORAL
     Route: 048
  2. TEMAZEPAM [Concomitant]
  3. SYNTHROID [Concomitant]
  4. PROZAC [Concomitant]
  5. VALIUM [Concomitant]

REACTIONS (4)
  - COLD SWEAT [None]
  - COMPLETED SUICIDE [None]
  - FEELING ABNORMAL [None]
  - MALAISE [None]
